FAERS Safety Report 5155842-4 (Version None)
Quarter: 2006Q4

REPORT INFORMATION
  Report Type: 
  Country: None (occurrence: None)
  Receive Date: 20061120
  Receipt Date: 20061120
  Transmission Date: 20070319
  Serious: Yes (Other)
  Sender: FDA-Public Use
  Company Number: None

PATIENT
  Age: 40 Year
  Sex: Female
  Weight: 68.0396 kg

DRUGS (2)
  1. DEPAKOTE [Suspect]
     Indication: BIPOLAR I DISORDER
     Dosage: 250MG  TWICE DAILY  ORALLY
     Route: 048
     Dates: start: 19980801, end: 20060601
  2. XANAX [Concomitant]

REACTIONS (10)
  - ALOPECIA [None]
  - HALLUCINATION [None]
  - HEPATIC STEATOSIS [None]
  - HIP FRACTURE [None]
  - HYPERCHOLESTEROLAEMIA [None]
  - HYPERTENSION [None]
  - MIGRAINE [None]
  - PERIARTHRITIS [None]
  - VISION BLURRED [None]
  - WEIGHT INCREASED [None]
